FAERS Safety Report 18964667 (Version 1)
Quarter: 2021Q1

REPORT INFORMATION
  Report Type: Spontaneous
  Country: CA (occurrence: CA)
  Receive Date: 20210303
  Receipt Date: 20210303
  Transmission Date: 20210420
  Serious: Yes (Other)
  Sender: FDA-Public Use
  Company Number: CA-PFIZER INC-2021209214

PATIENT
  Age: 68 Year
  Sex: Male
  Weight: 79 kg

DRUGS (10)
  1. TARO TRAMADOL ER [Concomitant]
     Dosage: 1 DF, 1X/DAY
     Route: 065
  2. INFLECTRA [Concomitant]
     Active Substance: INFLIXIMAB-DYYB
     Indication: PSORIATIC ARTHROPATHY
     Dosage: 240 MG Q 0 WEEK DOSE
     Route: 042
     Dates: start: 20210122, end: 20210122
  3. SULFASALAZINE. [Suspect]
     Active Substance: SULFASALAZINE
     Dosage: 1 DF, 2X/DAY
     Route: 065
     Dates: start: 20201103
  4. FOLIC ACID. [Concomitant]
     Active Substance: FOLIC ACID
     Dosage: 1 MG
     Route: 065
  5. INFLECTRA [Concomitant]
     Active Substance: INFLIXIMAB-DYYB
     Dosage: 237 MG Q 2 WEEK DOSE
     Route: 042
     Dates: start: 20210203, end: 20210203
  6. MAR FEBUXOSTAT [Concomitant]
     Dosage: 80 MG
     Route: 065
  7. PREGABALIN. [Concomitant]
     Active Substance: PREGABALIN
     Dosage: 225 MG, 2X/DAY
     Route: 065
  8. METHOTREXATE. [Concomitant]
     Active Substance: METHOTREXATE
     Indication: PSORIATIC ARTHROPATHY
     Dosage: 10 MG, WEEKLY
     Route: 065
  9. CRESTOR [Concomitant]
     Active Substance: ROSUVASTATIN CALCIUM
     Dosage: 10 MG, 1X/DAY
     Route: 065
  10. DOCUSATE SODIUM. [Concomitant]
     Active Substance: DOCUSATE SODIUM
     Dosage: 1 DF, 1X/DAY
     Route: 065

REACTIONS (1)
  - Angina pectoris [Unknown]
